FAERS Safety Report 12960822 (Version 1)
Quarter: 2016Q4

REPORT INFORMATION
  Report Type: Spontaneous
  Country: US (occurrence: US)
  Receive Date: 20161121
  Receipt Date: 20161121
  Transmission Date: 20170207
  Serious: No
  Sender: FDA-Public Use
  Company Number: US-OTSUKA-2016_020366

PATIENT
  Sex: Male

DRUGS (2)
  1. NUEDEXTA [Suspect]
     Active Substance: DEXTROMETHORPHAN HYDROBROMIDE\QUINIDINE SULFATE
     Dosage: UNK, BID (EVERY 12 HOURS)
     Route: 065
     Dates: start: 201608, end: 201608
  2. NUEDEXTA [Suspect]
     Active Substance: DEXTROMETHORPHAN HYDROBROMIDE\QUINIDINE SULFATE
     Indication: AFFECT LABILITY
     Dosage: 20/10 MG, QD
     Route: 048
     Dates: start: 201608, end: 201608

REACTIONS (2)
  - Sedation [Unknown]
  - Affect lability [Unknown]

NARRATIVE: CASE EVENT DATE: 201608
